FAERS Safety Report 12155779 (Version 1)
Quarter: 2016Q1

REPORT INFORMATION
  Report Type: Not Available
  Country: US (occurrence: US)
  Receive Date: 20160307
  Receipt Date: 20160307
  Transmission Date: 20160526
  Serious: No
  Sender: FDA-Public Use
  Company Number: US-ANIPHARMA-2015-US-001210

PATIENT
  Sex: Male

DRUGS (1)
  1. CORTENEMA [Suspect]
     Active Substance: HYDROCORTISONE
     Dosage: 1X DAILY AT 4PM
     Route: 054

REACTIONS (4)
  - Drug ineffective [Unknown]
  - Flushing [Recovered/Resolved]
  - Weight increased [Unknown]
  - Hypertension [Recovered/Resolved]
